FAERS Safety Report 8347875-1 (Version None)
Quarter: 2012Q2

REPORT INFORMATION
  Report Type: 
  Country: None (occurrence: None)
  Receive Date: 20120509
  Receipt Date: 20120426
  Transmission Date: 20120825
  Serious: Yes (Other)
  Sender: FDA-Public Use
  Company Number: US-ELI_LILLY_AND_COMPANY-US201203008288

PATIENT
  Sex: Female

DRUGS (2)
  1. FORTEO [Suspect]
     Indication: OSTEOPOROSIS
     Dosage: 20 UG, QD
     Dates: start: 20120201
  2. FORTEO [Suspect]
     Dosage: 20 UG, QD

REACTIONS (6)
  - KNEE ARTHROPLASTY [None]
  - PATELLA FRACTURE [None]
  - PAIN IN EXTREMITY [None]
  - ABASIA [None]
  - GAIT DISTURBANCE [None]
  - FOOT FRACTURE [None]
